FAERS Safety Report 23113525 (Version 3)
Quarter: 2023Q4

REPORT INFORMATION
  Report Type: Spontaneous
  Country: JP (occurrence: JP)
  Receive Date: 20231027
  Receipt Date: 20231025
  Transmission Date: 20240110
  Serious: Yes (Death, Other)
  Sender: FDA-Public Use
  Company Number: JP-ONO-2023JP026201

PATIENT
  Age: 8 Decade
  Sex: Male

DRUGS (3)
  1. OPDIVO [Suspect]
     Active Substance: NIVOLUMAB
     Indication: Gastric cancer
     Dosage: 360 MG, Q3W
     Route: 042
     Dates: start: 20231004, end: 20231004
  2. TS-1 [Concomitant]
     Active Substance: GIMERACIL\OTERACIL POTASSIUM\TEGAFUR
     Indication: Gastric cancer
     Dosage: 40 MG/M2, Q12H
     Route: 048
     Dates: start: 20231004, end: 20231012
  3. OXALIPLATIN [Concomitant]
     Active Substance: OXALIPLATIN
     Indication: Gastric cancer
     Dosage: 100 MG/M2, Q3W
     Route: 041
     Dates: start: 20231004, end: 20231004

REACTIONS (2)
  - Pneumonia aspiration [Fatal]
  - Aspiration [Unknown]

NARRATIVE: CASE EVENT DATE: 20231001
